FAERS Safety Report 10296809 (Version 1)
Quarter: 2014Q3

REPORT INFORMATION
  Report Type: Spontaneous
  Country: US (occurrence: None)
  Receive Date: 20140708
  Receipt Date: 20140708
  Transmission Date: 20150326
  Serious: Yes (Hospitalization)
  Sender: FDA-Public Use
  Company Number: US-001004

PATIENT
  Sex: Male

DRUGS (2)
  1. GATTEX [Suspect]
     Active Substance: TEDUGLUTIDE\WATER
     Indication: SHORT-BOWEL SYNDROME
     Dosage: 0.275 ML QD, STREN/VOLUM: 0.275 ML/FREQU: ONCE A DAY SUBCUTANEOUS
     Route: 058
  2. SOLUTION FOR PARENTERAL NUTRITION [Concomitant]

REACTIONS (3)
  - Kidney infection [None]
  - Gout [None]
  - Injection site reaction [None]
